FAERS Safety Report 4284625-2 (Version None)
Quarter: 2004Q1

REPORT INFORMATION
  Report Type: 
  Country: None (occurrence: None)
  Receive Date: 20040130
  Receipt Date: 20040114
  Transmission Date: 20041129
  Serious: Yes (Death, Life-Threatening, Hospitalization)
  Sender: FDA-Public Use
  Company Number: EWC031237504

PATIENT
  Age: 51 Year
  Sex: Male
  Weight: 50 kg

DRUGS (1)
  1. GEMCITABINE HYDROCHLORIDE-IV (GEMCITABINE) [Suspect]
     Indication: RENAL CANCER METASTATIC
     Dosage: 1000 MG/M2/1 OTHER
     Dates: start: 20031203, end: 20031203

REACTIONS (8)
  - ACUTE RESPIRATORY DISTRESS SYNDROME [None]
  - ASTHENIA [None]
  - HYPERSENSITIVITY [None]
  - HYPOTHERMIA [None]
  - LEUKOPENIA [None]
  - LUNG INFILTRATION [None]
  - PNEUMONIA [None]
  - PULMONARY HAEMORRHAGE [None]
